FAERS Safety Report 7806343-3 (Version None)
Quarter: 2011Q4

REPORT INFORMATION
  Report Type: 
  Country: None (occurrence: None)
  Receive Date: 20111007
  Receipt Date: 20111007
  Transmission Date: 20120403
  Serious: Yes (Other)
  Sender: FDA-Public Use
  Company Number: None

PATIENT
  Age: 74 Year
  Sex: Female
  Weight: 56.246 kg

DRUGS (2)
  1. ATELVIA [Suspect]
     Indication: OSTEOPOROSIS
     Dosage: 35 MG / ONCE A WEEK
  2. ATELVIA [Suspect]
     Indication: BONE SCAN
     Dosage: 35 MG / ONCE A WEEK

REACTIONS (8)
  - RENAL PAIN [None]
  - PAIN [None]
  - HEADACHE [None]
  - ABDOMINAL DISCOMFORT [None]
  - ASTHENIA [None]
  - TENSION [None]
  - BLOOD GLUCOSE INCREASED [None]
  - ARTHRALGIA [None]
